FAERS Safety Report 5819062-X (Version None)
Quarter: 2008Q3

REPORT INFORMATION
  Report Type: 
  Country: None (occurrence: None)
  Receive Date: 20080723
  Receipt Date: 20080710
  Transmission Date: 20090109
  Serious: Yes (Death, Hospitalization, Other)
  Sender: FDA-Public Use
  Company Number: US-BAYER-200812382BCC

PATIENT
  Age: 79 Year
  Sex: Female
  Weight: 89 kg

DRUGS (10)
  1. ASPIRIN [Suspect]
     Indication: ATRIAL FIBRILLATION
     Route: 048
  2. PLAVIX [Suspect]
     Indication: CORONARY ARTERY DISEASE
     Dosage: TOTAL DAILY DOSE: 75 MG
     Route: 048
     Dates: start: 20080421, end: 20080424
  3. COUMADIN [Suspect]
     Indication: ATRIAL FIBRILLATION
     Dosage: TOTAL DAILY DOSE: 1 MG
     Route: 048
     Dates: end: 20080424
  4. BUMETANIDE [Concomitant]
  5. ENALAPRIL MALEATE [Concomitant]
  6. ATORVASTATIN CALCIUM [Concomitant]
  7. POTASSIUM CHLORIDE [Concomitant]
  8. ZALEPLON [Concomitant]
  9. LEVOTHYROXINE SODIUM [Concomitant]
  10. SONATA [Concomitant]

REACTIONS (10)
  - ANAEMIA [None]
  - HAEMATOCRIT DECREASED [None]
  - HAEMATOMA [None]
  - HAEMORRHAGE [None]
  - HEART RATE DECREASED [None]
  - HYPOKALAEMIA [None]
  - HYPONATRAEMIA [None]
  - INJECTION SITE INFECTION [None]
  - RESPIRATORY FAILURE [None]
  - STAPHYLOCOCCAL SEPSIS [None]
